FAERS Safety Report 9267343 (Version 1)
Quarter: 2013Q2

REPORT INFORMATION
  Report Type: Spontaneous
  Country: FR (occurrence: FR)
  Receive Date: 20130502
  Receipt Date: 20130502
  Transmission Date: 20140414
  Serious: Yes (Other)
  Sender: FDA-Public Use
  Company Number: FR-TEVA-400591ISR

PATIENT
  Age: 66 Year
  Sex: Female

DRUGS (11)
  1. OXALIPLATINE TEVA [Suspect]
     Indication: COLON CANCER
     Dosage: 85 MG/M2 DAILY; 1 COURSE EVERY 15 DAYS
     Route: 041
     Dates: start: 20121130, end: 20121227
  2. OXALIPLATINE TEVA [Suspect]
     Dosage: 85 MG/M2 DAILY; 1 COURSE EVERY 15 DAYS
     Route: 041
     Dates: start: 20130201, end: 20130301
  3. FLUOROURACILE PFIZER [Suspect]
     Indication: COLON CANCER
     Dosage: 1 COURSE EVERY 15 DAYS
     Route: 041
     Dates: start: 20121130, end: 20121227
  4. FLUOROURACILE PFIZER [Suspect]
     Dosage: 1 COURSE EVERY 15 DAYS, THE DOSE WAS REDUCED BY 50%
     Route: 041
     Dates: start: 20130201
  5. LEVOFOLINATE DE CALCIUM WINTHROP [Suspect]
     Indication: COLON CANCER
     Dosage: 200 MG/M2 DAILY; 1 COURSE EVERY 15 DAYS
     Route: 041
     Dates: start: 20121130, end: 20121227
  6. LEVOFOLINATE DE CALCIUM WINTHROP [Suspect]
     Dosage: 200 MG/M2 DAILY; 1 COURSE EVERY 15 DAYS
     Route: 041
     Dates: start: 20130201, end: 20130301
  7. ATENOLOL [Concomitant]
     Indication: CHEMOTHERAPY
     Dosage: 25 MILLIGRAM DAILY; TABLET OF 50 MG (1/2 ON MORNING)
  8. ATENOLOL [Concomitant]
     Dates: start: 20121130
  9. ATENOLOL [Concomitant]
     Route: 042
     Dates: start: 20121130
  10. METHYLPREDNISOLONE [Concomitant]
  11. ONDANSETRON [Concomitant]
     Route: 042

REACTIONS (6)
  - Nausea [Recovered/Resolved]
  - Paraesthesia [Unknown]
  - Alopecia [Not Recovered/Not Resolved]
  - Neutropenia [Not Recovered/Not Resolved]
  - Dysgeusia [Unknown]
  - Generalised erythema [Unknown]
